FAERS Safety Report 8174881-2 (Version None)
Quarter: 2012Q1

REPORT INFORMATION
  Report Type: 
  Country: None (occurrence: None)
  Receive Date: 20120229
  Receipt Date: 20110418
  Transmission Date: 20120608
  Serious: No
  Sender: FDA-Public Use
  Company Number: US-GLAXOSMITHKLINE-A0923366A

PATIENT
  Age: 50 Year
  Sex: Female

DRUGS (4)
  1. VALTREX [Suspect]
     Indication: POST HERPETIC NEURALGIA
     Dosage: 500MG PER DAY
     Route: 048
     Dates: start: 20071101
  2. THYROID MEDICATION [Concomitant]
  3. WATER PILL [Concomitant]
  4. ATENOLOL [Concomitant]

REACTIONS (2)
  - URTICARIA [None]
  - PRURITUS [None]
